FAERS Safety Report 10401607 (Version 1)
Quarter: 2014Q3

REPORT INFORMATION
  Report Type: Spontaneous
  Country: US (occurrence: US)
  Receive Date: 20140822
  Receipt Date: 20140822
  Transmission Date: 20150326
  Serious: No
  Sender: FDA-Public Use
  Company Number: US-HORIZON-VIM-0060-2014

PATIENT
  Age: 40 Year
  Sex: Male

DRUGS (5)
  1. VIMOVO [Suspect]
     Active Substance: ESOMEPRAZOLE MAGNESIUM\NAPROXEN
     Indication: EPICONDYLITIS
     Dates: start: 20140519
  2. LYSINE HCL [Concomitant]
  3. CLARITIN [Concomitant]
     Active Substance: LORATADINE
  4. JUICE PLUS FIBER NUTRITIONAL SUPPLEMENTS, PROBIOTIC [Concomitant]
  5. KRILL OIL [Suspect]
     Active Substance: DIETARY SUPPLEMENT

REACTIONS (4)
  - Dizziness [Recovered/Resolved]
  - Vision blurred [Recovered/Resolved]
  - Nausea [Recovered/Resolved]
  - Dyspnoea [Recovered/Resolved]

NARRATIVE: CASE EVENT DATE: 20140608
